FAERS Safety Report 9132003 (Version 2)
Quarter: 2013Q2

REPORT INFORMATION
  Report Type: Spontaneous
  Country: SI (occurrence: SI)
  Receive Date: 20130301
  Receipt Date: 20130409
  Transmission Date: 20140414
  Serious: Yes (Life-Threatening, Hospitalization)
  Sender: FDA-Public Use
  Company Number: SI-ELI_LILLY_AND_COMPANY-SI201302007770

PATIENT
  Age: 48 Year
  Sex: Male

DRUGS (4)
  1. OLANZAPINE [Suspect]
     Indication: SCHIZOAFFECTIVE DISORDER
     Dosage: 20 MG, QD
     Route: 048
     Dates: start: 201002, end: 20121205
  2. LORAZEPAM [Concomitant]
     Indication: ANXIETY
     Dosage: 1.25 MG, BID
     Route: 048
     Dates: start: 201005, end: 201205
  3. ESCITALOPRAM [Concomitant]
     Dosage: 15 MG, QD
     Dates: start: 201005, end: 201205
  4. ARIPIPRAZOLE [Concomitant]
     Dosage: 15 MG, QD
     Dates: start: 201201, end: 201205

REACTIONS (2)
  - Acute hepatic failure [Recovered/Resolved]
  - Hepatotoxicity [Recovered/Resolved]
